FAERS Safety Report 12997917 (Version 1)
Quarter: 2016Q4

REPORT INFORMATION
  Report Type: Spontaneous
  Country: US (occurrence: US)
  Receive Date: 20161205
  Receipt Date: 20161205
  Transmission Date: 20170207
  Serious: No
  Sender: FDA-Public Use
  Company Number: US-THE MEDICINES COMPANY-US-MDCO-16-00360

PATIENT
  Age: 45 Year
  Weight: 131 kg

DRUGS (2)
  1. ORBACTIV [Suspect]
     Active Substance: ORITAVANCIN
     Indication: STAPHYLOCOCCAL ABSCESS
     Route: 041
     Dates: start: 20160801
  2. ORBACTIV [Suspect]
     Active Substance: ORITAVANCIN
     Indication: CELLULITIS STAPHYLOCOCCAL
     Route: 041
     Dates: start: 20160815

REACTIONS (2)
  - Chest pain [Recovered/Resolved]
  - Off label use [Unknown]

NARRATIVE: CASE EVENT DATE: 20160815
